FAERS Safety Report 25481389 (Version 3)
Quarter: 2025Q3

REPORT INFORMATION
  Report Type: Spontaneous
  Country: EU (occurrence: EU)
  Receive Date: 20250626
  Receipt Date: 20250707
  Transmission Date: 20251021
  Serious: Yes (Death, Other)
  Sender: SANDOZ
  Company Number: EU-NOVPHSZ-PHHY2019CZ124687

PATIENT
  Age: 56 Year
  Sex: Female

DRUGS (11)
  1. CISPLATIN [Suspect]
     Active Substance: CISPLATIN
     Indication: Mantle cell lymphoma
     Route: 065
  2. CISPLATIN [Suspect]
     Active Substance: CISPLATIN
     Indication: Chronic lymphocytic leukaemia
  3. CYTARABINE [Suspect]
     Active Substance: CYTARABINE
     Indication: Mantle cell lymphoma
     Route: 065
  4. CYCLOPHOSPHAMIDE [Suspect]
     Active Substance: CYCLOPHOSPHAMIDE
     Indication: Chronic lymphocytic leukaemia
     Route: 065
     Dates: start: 200503
  5. DECADRON (DEXAMETHASONE SODIUM PHOSPHATE) [Suspect]
     Active Substance: DEXAMETHASONE SODIUM PHOSPHATE
     Indication: Mantle cell lymphoma
     Route: 065
  6. FLUDARABINE [Suspect]
     Active Substance: FLUDARABINE PHOSPHATE
     Indication: Chronic lymphocytic leukaemia
     Route: 065
     Dates: start: 200503
  7. RITUXIMAB [Suspect]
     Active Substance: RITUXIMAB
     Indication: Chronic lymphocytic leukaemia
     Route: 065
     Dates: start: 200503
  8. CYTARABINE [Concomitant]
     Active Substance: CYTARABINE
     Indication: Chronic lymphocytic leukaemia
     Route: 065
  9. CISPLATIN [Concomitant]
     Active Substance: CISPLATIN
     Indication: Chronic lymphocytic leukaemia
     Route: 065
  10. ETOPOSIDE [Concomitant]
     Active Substance: ETOPOSIDE
     Indication: Chronic lymphocytic leukaemia
     Route: 065
  11. SOLU-MEDROL [Concomitant]
     Active Substance: METHYLPREDNISOLONE SODIUM SUCCINATE
     Indication: Chronic lymphocytic leukaemia
     Route: 065

REACTIONS (6)
  - Mantle cell lymphoma [Fatal]
  - Second primary malignancy [Fatal]
  - Richter^s syndrome [Fatal]
  - Drug resistance [Fatal]
  - Leukocytosis [Unknown]
  - Product use in unapproved indication [Unknown]
